FAERS Safety Report 9994798 (Version 1)
Quarter: 2014Q1

REPORT INFORMATION
  Report Type: Report from Study
  Country: AT (occurrence: AT)
  Receive Date: 20140311
  Receipt Date: 20140311
  Transmission Date: 20141002
  Serious: Yes (Other)
  Sender: FDA-Public Use
  Company Number: PHHY2014AT027403

PATIENT
  Age: 47 Year
  Sex: Male
  Weight: 120 kg

DRUGS (21)
  1. MYCOPHENOLIC ACID [Suspect]
     Indication: IMMUNOSUPPRESSION
     Dosage: 360 MG, DAILY
  2. MYCOPHENOLIC ACID [Suspect]
     Dosage: 720 MG, DAILY
  3. TACROLIMUS [Suspect]
     Indication: IMMUNOSUPPRESSION
     Dosage: 9 MG, DAILY
  4. TACROLIMUS [Suspect]
     Dosage: 8 MG,DAILY
  5. BASILIXIMAB [Concomitant]
     Indication: IMMUNOSUPPRESSION
     Dosage: 20 MG, DAILY
  6. APREDNISLON [Concomitant]
     Indication: IMMUNOSUPPRESSION
     Dosage: 100 MG, DAILY
  7. APREDNISLON [Concomitant]
     Dosage: 5 MG,DAILY
  8. LASIX [Concomitant]
     Indication: OEDEMA
     Dosage: 500 MG, UNK
  9. NEXIUM 1-2-3 [Concomitant]
     Indication: ABDOMINAL DISCOMFORT
     Dosage: 40 MG, QD
  10. LYRICA [Concomitant]
     Indication: POLYNEUROPATHY
     Dosage: 75 MG, BID
  11. HYDAL [Concomitant]
     Indication: POLYNEUROPATHY
     Dosage: 4 MG, BID
  12. HYDAL [Concomitant]
     Dosage: 8 MG, UNK
  13. HYDAL [Concomitant]
     Dosage: 12 MG, UNK
  14. FRAGMIN [Concomitant]
     Indication: THROMBOSIS PROPHYLAXIS
     Route: 058
  15. ACTRAPID HM//INSULIN HUMAN [Concomitant]
     Indication: BLOOD GLUCOSE
     Dosage: 3 DF, UNK
  16. ARANESP [Concomitant]
     Indication: ANAEMIA
     Dosage: 60 UG, FOR EVERY FOUR WEEKS
  17. NEPHROTRANS [Concomitant]
     Indication: METABOLIC ACIDOSIS
  18. VALCYTE [Concomitant]
     Indication: CYTOMEGALOVIRUS VIRAEMIA
     Dosage: 450 MG, UNK
  19. FERINJECT [Concomitant]
     Indication: ANAEMIA
     Dosage: 1000 MG, QD
  20. CYMBALTA [Concomitant]
     Indication: POLYNEUROPATHY
     Dosage: 30 MG, QD
  21. AMLODIPINE [Concomitant]
     Indication: HYPERTENSION
     Dosage: 10 MG, UNK

REACTIONS (6)
  - Metabolic acidosis [Unknown]
  - Cytomegalovirus viraemia [Unknown]
  - Hypertension [Unknown]
  - Blood creatinine increased [Unknown]
  - Blood glucose increased [Unknown]
  - Blood cholesterol increased [Unknown]
